FAERS Safety Report 24417720 (Version 2)
Quarter: 2024Q4

REPORT INFORMATION
  Report Type: Report from Study
  Country: FR (occurrence: FR)
  Receive Date: 20241009
  Receipt Date: 20241015
  Transmission Date: 20250115
  Serious: Yes (Other)
  Sender: JOHNSON AND JOHNSON
  Company Number: FR-JNJFOC-20240589226

PATIENT
  Age: 72 Year
  Sex: Male

DRUGS (3)
  1. DARZALEX [Suspect]
     Active Substance: DARATUMUMAB
     Indication: Plasma cell myeloma
     Dosage: 15 (UNITS UNSPECIFIED)
     Route: 065
     Dates: start: 20240125, end: 20240125
  2. DARZALEX [Suspect]
     Active Substance: DARATUMUMAB
     Dosage: 15 (UNITS UNSPECIFIED)
     Route: 065
     Dates: start: 20240201, end: 20240201
  3. DARZALEX [Suspect]
     Active Substance: DARATUMUMAB
     Dosage: 15 (UNITS UNSPECIFIED)
     Route: 065
     Dates: start: 20240208, end: 20240208

REACTIONS (4)
  - Hypokalaemia [Recovered/Resolved]
  - Neutropenia [Not Recovered/Not Resolved]
  - Leukopenia [Not Recovered/Not Resolved]
  - Anaemia [Recovered/Resolved]

NARRATIVE: CASE EVENT DATE: 20240201
